FAERS Safety Report 4724500-X (Version None)
Quarter: 2005Q3

REPORT INFORMATION
  Report Type: 
  Country: None (occurrence: None)
  Receive Date: 20050726
  Receipt Date: 20050531
  Transmission Date: 20060218
  Serious: Yes (Other)
  Sender: FDA-Public Use
  Company Number: IN-BRISTOL-MYERS SQUIBB COMPANY-12987905

PATIENT
  Age: 31 Year
  Sex: Female

DRUGS (4)
  1. MEGACE [Suspect]
     Indication: HIV WASTING SYNDROME
     Route: 048
     Dates: start: 20050204
  2. TRIOMUNE [Concomitant]
     Indication: HIV INFECTION
     Dosage: LAMIVUDINE 150MG STAV 30MG NEVIRAPINE 200MG
     Dates: start: 20030121
  3. EPIDOSIN [Concomitant]
     Indication: ABDOMINAL PAIN
     Dates: start: 20030225
  4. ELECTRAL [Concomitant]
     Indication: DIARRHOEA
     Dates: start: 20030225

REACTIONS (1)
  - CARDIAC FAILURE CONGESTIVE [None]
